FAERS Safety Report 4715576-4 (Version None)
Quarter: 2005Q3

REPORT INFORMATION
  Report Type: 
  Country: None (occurrence: None)
  Receive Date: 20050713
  Receipt Date: 20050331
  Transmission Date: 20060218
  Serious: Yes (Life-Threatening)
  Sender: FDA-Public Use
  Company Number: 2005FR-00081

PATIENT
  Age: 28 Year
  Sex: Female

DRUGS (5)
  1. FLUOXETINE [Suspect]
     Indication: DEPRESSION
     Dosage: 60MG, ORAL
     Route: 048
     Dates: start: 20041112, end: 20050318
  2. MEFENAMIC ACID [Concomitant]
  3. CARBAMAZEPINE [Concomitant]
  4. PRIADEL [Concomitant]
  5. THYROXINE [Concomitant]

REACTIONS (1)
  - SELF-INJURIOUS IDEATION [None]
